FAERS Safety Report 21565733 (Version 1)
Quarter: 2022Q4

REPORT INFORMATION
  Report Type: Report from Study
  Country: US (occurrence: US)
  Receive Date: 20221108
  Receipt Date: 20221108
  Transmission Date: 20230112
  Serious: No
  Sender: FDA-Public Use
  Company Number: US-ABBVIE-4153262

PATIENT
  Sex: Female

DRUGS (16)
  1. HUMIRA [Suspect]
     Active Substance: ADALIMUMAB
     Indication: Arthritis enteropathic
     Route: 058
  2. CYMBALTA CPE 60MG [Concomitant]
     Indication: Product used for unknown indication
     Route: 048
  3. HYDROCHLOROT TAB 50MG [Concomitant]
     Indication: Product used for unknown indication
     Route: 048
  4. FOLIC ACID TAB 400MCG [Concomitant]
     Indication: Product used for unknown indication
  5. ZYRTEC ALLER TAB 10MG [Concomitant]
     Indication: Product used for unknown indication
     Route: 048
  6. SYNTHROID TAB 200MCG [Concomitant]
     Indication: Product used for unknown indication
  7. PREDNISONE TA 20MG [Concomitant]
     Indication: Product used for unknown indication
  8. NORCO TAB 5-325MG [Concomitant]
     Indication: Product used for unknown indication
  9. METHOTREXATE [Concomitant]
     Active Substance: METHOTREXATE
     Indication: Product used for unknown indication
     Route: 048
  10. ESOMEPRAZOLE CPD 40MG [Concomitant]
     Indication: Product used for unknown indication
     Route: 048
  11. LOSARTAN POT TAB 100MG [Concomitant]
     Indication: Product used for unknown indication
     Route: 048
  12. NEURONTIN TAB 600MG [Concomitant]
     Indication: Product used for unknown indication
     Route: 048
  13. CENTRUM SILV TAB [Concomitant]
     Indication: Product used for unknown indication
  14. DICLOFENAC P TAB 50MG [Concomitant]
     Indication: Product used for unknown indication
     Route: 048
  15. AMLODIPINE B TAB 5MG [Concomitant]
     Indication: Product used for unknown indication
     Route: 048
  16. BD ALLERGY SYRINGE [Concomitant]
     Indication: Product used for unknown indication

REACTIONS (1)
  - Drug specific antibody present [Unknown]
